FAERS Safety Report 11378773 (Version 1)
Quarter: 2015Q3

REPORT INFORMATION
  Report Type: Spontaneous
  Country: US (occurrence: US)
  Receive Date: 20150811
  Receipt Date: 20150811
  Transmission Date: 20151125
  Serious: Yes (Other)
  Sender: FDA-Public Use
  Company Number: US-ELI_LILLY_AND_COMPANY-US200905004908

PATIENT
  Age: 69 Year
  Sex: Female

DRUGS (1)
  1. HUMULIN 70/30 [Suspect]
     Active Substance: INSULIN HUMAN
     Dosage: UNK, UNK
     Dates: start: 200904

REACTIONS (11)
  - Pyrexia [Recovered/Resolved]
  - Fall [Recovered/Resolved]
  - Contusion [Recovered/Resolved]
  - Hypoglycaemic unconsciousness [Recovered/Resolved]
  - Eye contusion [Recovering/Resolving]
  - Tooth infection [Unknown]
  - Infection [Unknown]
  - Blood glucose decreased [Recovered/Resolved]
  - Hyperhidrosis [Recovered/Resolved]
  - Loose tooth [Recovered/Resolved]
  - Tooth injury [Recovered/Resolved]

NARRATIVE: CASE EVENT DATE: 20090506
